FAERS Safety Report 10249937 (Version 2)
Quarter: 2014Q2

REPORT INFORMATION
  Report Type: Spontaneous
  Country: BR (occurrence: BR)
  Receive Date: 20140620
  Receipt Date: 20140620
  Transmission Date: 20141212
  Serious: Yes (Other)
  Sender: FDA-Public Use
  Company Number: BR-ABBVIE-14P-020-1249618-00

PATIENT
  Sex: Female
  Weight: 92 kg

DRUGS (4)
  1. SYNTHROID [Suspect]
     Indication: PRODUCT USED FOR UNKNOWN INDICATION
  2. SYNTHROID [Suspect]
  3. SYNTHROID [Suspect]
  4. ALL OTHER THERAPEUTIC PRODUCTS [Concomitant]
     Indication: ILL-DEFINED DISORDER

REACTIONS (5)
  - Thyroid nodule removal [Recovered/Resolved]
  - Product physical issue [Unknown]
  - Drug dose omission [Unknown]
  - Malaise [Recovered/Resolved]
  - Swelling [Recovered/Resolved]
